FAERS Safety Report 19007343 (Version 1)
Quarter: 2021Q1

REPORT INFORMATION
  Report Type: Spontaneous
  Country: US (occurrence: US)
  Receive Date: 20210315
  Receipt Date: 20210315
  Transmission Date: 20210420
  Serious: Yes (Death)
  Sender: FDA-Public Use
  Company Number: None

PATIENT
  Age: 82 Year
  Sex: Female
  Weight: 69.71 kg

DRUGS (18)
  1. VALPROIC ACID 250MG [Concomitant]
  2. ALBUTEROL 108MCG [Concomitant]
     Active Substance: ALBUTEROL
  3. LAPATINIB [Suspect]
     Active Substance: LAPATINIB
     Indication: BREAST CANCER FEMALE
     Route: 048
     Dates: start: 20201204, end: 20210307
  4. FUROSEMIDE. [Concomitant]
     Active Substance: FUROSEMIDE
  5. MULTIVITAMIN [Concomitant]
     Active Substance: VITAMINS
  6. MIRTAZAPINE. [Concomitant]
     Active Substance: MIRTAZAPINE
  7. IBUPROFEN 200MG [Concomitant]
     Active Substance: IBUPROFEN
  8. ALLOPURINOL. [Concomitant]
     Active Substance: ALLOPURINOL
  9. OYSTER SHELL CALCIUM 500MG [Concomitant]
  10. ANASTRAZOLE 1MG [Concomitant]
     Active Substance: ANASTROZOLE
  11. DONEPEZIL. [Concomitant]
     Active Substance: DONEPEZIL
  12. PROPRANOLOL [Concomitant]
     Active Substance: PROPRANOLOL HYDROCHLORIDE
  13. TUSSIN COUGH 15MG [Concomitant]
  14. TYLENOL [Concomitant]
     Active Substance: ACETAMINOPHEN
  15. MILK OF MAGNESIA [Concomitant]
     Active Substance: MAGNESIUM HYDROXIDE
  16. ROBITUSSIN PEAK COLD MULTI SYMPTOM [Concomitant]
  17. IMMUNE SUPORT [Concomitant]
  18. ASPIRIN 81MG [Concomitant]
     Active Substance: ASPIRIN

REACTIONS (1)
  - Death [None]

NARRATIVE: CASE EVENT DATE: 20210307
